FAERS Safety Report 14013422 (Version 1)
Quarter: 2017Q3

REPORT INFORMATION
  Report Type: Spontaneous
  Country: US (occurrence: US)
  Receive Date: 20170926
  Receipt Date: 20170926
  Transmission Date: 20171128
  Serious: No
  Sender: FDA-Public Use
  Company Number: US-DEPOMED, INC.-US-2017DEP000789

PATIENT

DRUGS (2)
  1. GRALISE [Suspect]
     Active Substance: GABAPENTIN
     Indication: BACK PAIN
     Dosage: DIRECTED TO FOLLOW TITRATION SCHEDULE FOR SAMPLE PACK WITH EVENING MEAL
     Route: 048
     Dates: start: 20170412
  2. GRALISE [Suspect]
     Active Substance: GABAPENTIN
     Indication: TREMOR

REACTIONS (1)
  - Product use in unapproved indication [Unknown]

NARRATIVE: CASE EVENT DATE: 20170412
